FAERS Safety Report 4953749-6 (Version None)
Quarter: 2006Q1

REPORT INFORMATION
  Report Type: 
  Country: None (occurrence: None)
  Receive Date: 20060327
  Receipt Date: 20060315
  Transmission Date: 20060701
  Serious: Yes (Hospitalization, Other)
  Sender: FDA-Public Use
  Company Number: NSADSS2001012786

PATIENT
  Sex: Male
  Weight: 73.03 kg

DRUGS (11)
  1. REMICADE [Suspect]
     Route: 041
  2. REMICADE [Suspect]
     Route: 041
  3. REMICADE [Suspect]
     Route: 041
  4. REMICADE [Suspect]
     Route: 041
  5. REMICADE [Suspect]
     Route: 041
  6. REMICADE [Suspect]
     Indication: CROHN'S DISEASE
     Route: 041
  7. PAXIL [Concomitant]
     Indication: DRUG USE FOR UNKNOWN INDICATION
  8. ALLEGRA [Concomitant]
     Indication: DRUG USE FOR UNKNOWN INDICATION
  9. PREVACID [Concomitant]
     Indication: DRUG USE FOR UNKNOWN INDICATION
  10. CLOBETASOL PROPIONATE [Concomitant]
  11. ACTONEL [Concomitant]

REACTIONS (18)
  - ANTINUCLEAR ANTIBODY POSITIVE [None]
  - ARTHRALGIA [None]
  - CROHN'S DISEASE [None]
  - CYTOMEGALOVIRUS INFECTION [None]
  - DIZZINESS [None]
  - ENTEROBACTER INFECTION [None]
  - HEADACHE [None]
  - HYPOGEUSIA [None]
  - IMPAIRED GASTRIC EMPTYING [None]
  - INFUSION RELATED REACTION [None]
  - LUNG DISORDER [None]
  - OESOPHAGEAL CANDIDIASIS [None]
  - PERICARDIAL EFFUSION [None]
  - PULMONARY FIBROSIS [None]
  - SKIN CANCER [None]
  - SQUAMOUS CELL CARCINOMA [None]
  - TRANSIENT ACANTHOLYTIC DERMATOSIS [None]
  - VISUAL ACUITY REDUCED [None]
